FAERS Safety Report 6169296-2 (Version None)
Quarter: 2009Q2

REPORT INFORMATION
  Report Type: 
  Country: None (occurrence: None)
  Receive Date: 20090424
  Receipt Date: 20090409
  Transmission Date: 20091009
  Serious: Yes (Other)
  Sender: FDA-Public Use
  Company Number: AE2009-050

PATIENT
  Age: 60 Year
  Sex: Male

DRUGS (1)
  1. FAZACLO ODT [Suspect]
     Dosage: 725 MG DAILY PO
     Route: 048
     Dates: start: 20070822

REACTIONS (1)
  - LUNG NEOPLASM MALIGNANT [None]
